FAERS Safety Report 4305246-9 (Version None)
Quarter: 2004Q1

REPORT INFORMATION
  Report Type: 
  Country: None (occurrence: None)
  Receive Date: 20040226
  Receipt Date: 20031119
  Transmission Date: 20041129
  Serious: No
  Sender: FDA-Public Use
  Company Number: US-BRISTOL-MYERS SQUIBB COMPANY-12439824

PATIENT
  Age: 37 Year
  Sex: Male

DRUGS (1)
  1. DEFINITY [Suspect]
     Indication: CARDIAC IMAGING PROCEDURE
     Route: 040
     Dates: start: 20031119, end: 20031119

REACTIONS (1)
  - PARAESTHESIA [None]
